FAERS Safety Report 9289993 (Version 4)
Quarter: 2014Q3

REPORT INFORMATION
  Report Type: Report from Study
  Country: CA (occurrence: CA)
  Receive Date: 20130515
  Receipt Date: 20140820
  Transmission Date: 20150326
  Serious: Yes (Hospitalization)
  Sender: FDA-Public Use
  Company Number: CA-JNJFOC-20130505996

PATIENT
  Age: 61 Year
  Sex: Male
  Weight: 102 kg

DRUGS (20)
  1. REMICADE [Suspect]
     Active Substance: INFLIXIMAB
     Indication: RHEUMATOID ARTHRITIS
     Route: 042
     Dates: start: 20090801
  2. CRESTON [Concomitant]
     Route: 065
  3. HYDROMORPHONE [Concomitant]
     Active Substance: HYDROMORPHONE
     Route: 065
  4. GLICLAZIDE [Concomitant]
     Active Substance: GLICLAZIDE
     Route: 065
  5. BETOPTIC [Concomitant]
     Active Substance: BETAXOLOL HYDROCHLORIDE
     Route: 065
  6. METHOTREXATE [Concomitant]
     Active Substance: METHOTREXATE
     Route: 065
  7. FERROUS SULFATE [Concomitant]
     Active Substance: FERROUS SULFATE\FERROUS SULFATE, DRIED
     Route: 065
  8. REMICADE [Suspect]
     Active Substance: INFLIXIMAB
     Indication: RHEUMATOID ARTHRITIS
     Route: 042
     Dates: start: 200908
  9. HYZAAR [Concomitant]
     Active Substance: HYDROCHLOROTHIAZIDE\LOSARTAN POTASSIUM
     Dosage: LOSARTAN 50MG AND HYDROCHLOROTHIAZIDE 12.5MG
     Route: 065
  10. FLUVOXAMINE [Concomitant]
     Active Substance: FLUVOXAMINE
     Route: 065
  11. REMICADE [Suspect]
     Active Substance: INFLIXIMAB
     Indication: COLITIS ULCERATIVE
     Route: 042
     Dates: start: 20090801
  12. REMICADE [Suspect]
     Active Substance: INFLIXIMAB
     Indication: COLITIS ULCERATIVE
     Route: 042
     Dates: start: 200908
  13. ALTACE [Concomitant]
     Active Substance: RAMIPRIL
     Route: 065
  14. MELOXICAM. [Concomitant]
     Active Substance: MELOXICAM
     Route: 065
  15. FOLIC ACID. [Concomitant]
     Active Substance: FOLIC ACID
     Route: 065
  16. REMICADE [Suspect]
     Active Substance: INFLIXIMAB
     Indication: CROHN^S DISEASE
     Route: 042
     Dates: start: 20090801
  17. REMICADE [Suspect]
     Active Substance: INFLIXIMAB
     Indication: CROHN^S DISEASE
     Route: 042
     Dates: start: 200908
  18. ATENOLOL. [Concomitant]
     Active Substance: ATENOLOL
     Route: 065
  19. RENEDIL [Concomitant]
     Active Substance: FELODIPINE
     Route: 065
  20. CALCIUM [Concomitant]
     Active Substance: CALCIUM
     Route: 065

REACTIONS (6)
  - Colectomy [Recovered/Resolved]
  - Polyp [Not Recovered/Not Resolved]
  - Adverse event [Unknown]
  - Colitis ulcerative [Not Recovered/Not Resolved]
  - Enterostomy [Recovered/Resolved]
  - Stoma site abscess [Unknown]

NARRATIVE: CASE EVENT DATE: 201303
